FAERS Safety Report 8114438-2 (Version None)
Quarter: 2012Q1

REPORT INFORMATION
  Report Type: 
  Country: None (occurrence: None)
  Receive Date: 20120206
  Receipt Date: 20120128
  Transmission Date: 20120608
  Serious: No
  Sender: FDA-Public Use
  Company Number: US-BIOGENIDEC-2012BI003730

PATIENT
  Age: 40 Year
  Sex: Female

DRUGS (2)
  1. PRISTIQ [Concomitant]
     Indication: DEPRESSION
  2. TYSABRI [Suspect]
     Indication: MULTIPLE SCLEROSIS
     Route: 042
     Dates: start: 20111117

REACTIONS (6)
  - FATIGUE [None]
  - MYALGIA [None]
  - PARANOIA [None]
  - DEPRESSED MOOD [None]
  - MANIA [None]
  - MULTIPLE SCLEROSIS [None]
